FAERS Safety Report 5830943-3 (Version None)
Quarter: 2008Q3

REPORT INFORMATION
  Report Type: 
  Country: None (occurrence: None)
  Receive Date: 20080801
  Receipt Date: 20080215
  Transmission Date: 20090109
  Serious: No
  Sender: FDA-Public Use
  Company Number: US-BRISTOL-MYERS SQUIBB COMPANY-14078810

PATIENT

DRUGS (1)
  1. COUMADIN [Suspect]
     Dosage: DOSE INCREASED TO 7.5MG/D;10MG/D.ON 26DEC07 GIVEN NEW PRESCRIPTION FOR COUMADIN.
     Dates: start: 20071221

REACTIONS (1)
  - INTERNATIONAL NORMALISED RATIO DECREASED [None]
